FAERS Safety Report 4785888-7 (Version None)
Quarter: 2005Q3

REPORT INFORMATION
  Report Type: 
  Country: None (occurrence: None)
  Receive Date: 20050929
  Receipt Date: 20050919
  Transmission Date: 20060218
  Serious: Yes (Death)
  Sender: FDA-Public Use
  Company Number: DSA_27159_2005

PATIENT
  Age: 62 Year

DRUGS (3)
  1. ISOSORBIDE DINITRATE [Suspect]
     Dosage: DF PO
     Route: 048
  2. GABAPENTIN [Suspect]
     Dosage: DF PO
     Route: 048
  3. ETHANOL [Suspect]
     Dosage: DF PO
     Route: 048

REACTIONS (2)
  - COMPLETED SUICIDE [None]
  - MULTIPLE DRUG OVERDOSE [None]
